FAERS Safety Report 19080836 (Version 5)
Quarter: 2021Q2

REPORT INFORMATION
  Report Type: Report from Study
  Country: AT (occurrence: AT)
  Receive Date: 20210331
  Receipt Date: 20210615
  Transmission Date: 20210717
  Serious: Yes (Hospitalization)
  Sender: FDA-Public Use
  Company Number: AT-EXELIXIS-XL18421038977

PATIENT
  Age: 79 Year
  Sex: Male
  Weight: 75.5 kg

DRUGS (12)
  1. EUTHYROX [Concomitant]
     Active Substance: LEVOTHYROXINE SODIUM
  2. XL184 [Suspect]
     Active Substance: CABOZANTINIB
     Indication: HEPATOCELLULAR CARCINOMA
     Dosage: 60 MG, QD
     Route: 048
     Dates: start: 20200706, end: 20210326
  3. NOVALGIN [Concomitant]
  4. CARVEDILOL. [Concomitant]
     Active Substance: CARVEDILOL
  5. PROTIFAR [Concomitant]
     Active Substance: DIETARY SUPPLEMENT
  6. XL184 [Suspect]
     Active Substance: CABOZANTINIB
     Dosage: 40 MG, QD
     Route: 048
     Dates: start: 20210406
  7. LASILACTON [Concomitant]
     Active Substance: FUROSEMIDE\SPIRONOLACTONE
  8. ZYPREXA [Concomitant]
     Active Substance: OLANZAPINE
  9. CIPROFLOXACIN. [Concomitant]
     Active Substance: CIPROFLOXACIN
  10. YOMOGI [Concomitant]
  11. ALNA [Concomitant]
     Active Substance: TAMSULOSIN HYDROCHLORIDE
  12. ANAEROBEX [Concomitant]
     Active Substance: METRONIDAZOLE
     Dosage: UNK

REACTIONS (1)
  - Hepatic cirrhosis [Recovered/Resolved]

NARRATIVE: CASE EVENT DATE: 20210320
